FAERS Safety Report 6422182-2 (Version None)
Quarter: 2009Q4

REPORT INFORMATION
  Report Type: 
  Country: None (occurrence: None)
  Receive Date: 20091030
  Receipt Date: 20091019
  Transmission Date: 20100525
  Serious: Yes (Hospitalization, Other)
  Sender: FDA-Public Use
  Company Number: PHEH2009US04063

PATIENT
  Sex: Female
  Weight: 80 kg

DRUGS (9)
  1. CLOZARIL [Suspect]
     Indication: SCHIZOPHRENIA
     Dosage: 250 MG, QHS
     Route: 048
     Dates: end: 20070321
  2. CLOZARIL [Suspect]
     Indication: PSYCHOTIC DISORDER
     Dosage: 250 MG QHS
     Route: 048
     Dates: end: 20090129
  3. DIAMOX SRC [Concomitant]
     Indication: BENIGN INTRACRANIAL HYPERTENSION
     Dosage: 250 MG, QID
     Dates: start: 20070104, end: 20070603
  4. INVEGA [Concomitant]
     Indication: SCHIZOAFFECTIVE DISORDER
     Dosage: 6 MG, QHS
     Dates: start: 20070307, end: 20080313
  5. MULTI-VITAMINS [Concomitant]
     Indication: SUPPLEMENTATION THERAPY
     Dosage: 1 TABLET DAILY
  6. SEROQUEL [Concomitant]
     Indication: SCHIZOAFFECTIVE DISORDER
     Dosage: 400 MG QHS, PLUS 100 MG QID, PRN
     Dates: start: 20080126, end: 20081021
  7. ZYPREXA [Concomitant]
     Indication: SCHIZOAFFECTIVE DISORDER
     Dosage: UNK, UNK
     Dates: start: 20071105, end: 20080823
  8. METAMUCIL [Concomitant]
  9. NOVOLOG [Suspect]
     Dosage: 3 UNITS BID
     Dates: start: 20070416, end: 20070603

REACTIONS (12)
  - AFFECTIVE DISORDER [None]
  - CAESAREAN SECTION [None]
  - COLITIS MICROSCOPIC [None]
  - CONSTIPATION [None]
  - DRUG EXPOSURE DURING PREGNANCY [None]
  - HYPERPROLACTINAEMIA [None]
  - INSOMNIA [None]
  - LEUKOPENIA [None]
  - NAUSEA [None]
  - NEUTROPHIL COUNT DECREASED [None]
  - NORMAL NEWBORN [None]
  - PSYCHOTIC DISORDER [None]
